FAERS Safety Report 21185323 (Version 4)
Quarter: 2024Q1

REPORT INFORMATION
  Report Type: Spontaneous
  Country: US (occurrence: US)
  Receive Date: 20220808
  Receipt Date: 20240321
  Transmission Date: 20240410
  Serious: Yes (Death, Hospitalization, Other)
  Sender: FDA-Public Use
  Company Number: US-PFIZER INC-PV202200036731

PATIENT
  Age: 73 Year
  Sex: Male
  Weight: 51.247 kg

DRUGS (2)
  1. VYNDAMAX [Suspect]
     Active Substance: TAFAMIDIS
     Indication: Amyloidosis
     Dosage: UNK
     Dates: start: 202109
  2. VYNDAMAX [Suspect]
     Active Substance: TAFAMIDIS
     Indication: Cardiac amyloidosis
     Dosage: 61 MG PER DAY
     Dates: start: 202301

REACTIONS (9)
  - Death [Fatal]
  - Cardiac failure acute [Unknown]
  - Bundle branch block right [Unknown]
  - Atrioventricular block second degree [Unknown]
  - Mitral valve incompetence [Unknown]
  - Cardiac amyloidosis [Unknown]
  - Disease progression [Unknown]
  - Fatigue [Unknown]
  - Dyspnoea [Unknown]

NARRATIVE: CASE EVENT DATE: 20220204
